FAERS Safety Report 10183574 (Version 2)
Quarter: 2014Q2

REPORT INFORMATION
  Report Type: Spontaneous
  Country: IL (occurrence: IL)
  Receive Date: 20140520
  Receipt Date: 20140606
  Transmission Date: 20141212
  Serious: Yes (Other)
  Sender: FDA-Public Use
  Company Number: IL-GILEAD-2014-0102859

PATIENT
  Age: 35 Year
  Sex: Male

DRUGS (3)
  1. SOVALDI [Suspect]
     Indication: HEPATITIS C
     Dosage: UNK
     Route: 065
     Dates: start: 20140317, end: 201405
  2. INTERFERON [Concomitant]
     Dosage: UNK
     Dates: end: 2014
  3. VANCOMYCIN [Concomitant]
     Indication: INFECTION
     Route: 042

REACTIONS (4)
  - Post procedural infection [Unknown]
  - Sepsis [Unknown]
  - Leukopenia [Unknown]
  - Pyrexia [Unknown]
